FAERS Safety Report 16680917 (Version 5)
Quarter: 2019Q3

REPORT INFORMATION
  Report Type: Report from Study
  Country: CA (occurrence: CA)
  Receive Date: 20190808
  Receipt Date: 20190916
  Transmission Date: 20191004
  Serious: Yes (Hospitalization, Other)
  Sender: FDA-Public Use
  Company Number: CA-UCBSA-2017018204

PATIENT
  Age: 47 Year
  Sex: Female

DRUGS (3)
  1. PREDNISONE. [Concomitant]
     Active Substance: PREDNISONE
     Indication: BREAKTHROUGH PAIN
     Dosage: UNK
  2. CERTOLIZUMAB PEGOL [Suspect]
     Active Substance: CERTOLIZUMAB PEGOL
     Indication: RHEUMATOID ARTHRITIS
     Dosage: 400 MG, EV 2 WEEKS(QOW)
     Route: 058
     Dates: start: 20170417, end: 2017
  3. CIMZIA [Suspect]
     Active Substance: CERTOLIZUMAB PEGOL
     Indication: RHEUMATOID ARTHRITIS
     Dosage: 200 MILLIGRAM, EV 2 WEEKS(QOW)
     Route: 058
     Dates: start: 20190719, end: 20190719

REACTIONS (12)
  - Papillary renal cell carcinoma [Unknown]
  - Intraocular pressure increased [Unknown]
  - Rash vesicular [Recovering/Resolving]
  - Dizziness [Unknown]
  - Pharyngitis [Recovering/Resolving]
  - Chest discomfort [Recovering/Resolving]
  - Bronchitis [Recovering/Resolving]
  - Injection site mass [Recovering/Resolving]
  - Therapeutic response shortened [Unknown]
  - Rash [Recovering/Resolving]
  - Adverse reaction [Recovered/Resolved with Sequelae]
  - Sinusitis [Recovering/Resolving]

NARRATIVE: CASE EVENT DATE: 2017
